FAERS Safety Report 5758361-7 (Version None)
Quarter: 2008Q2

REPORT INFORMATION
  Report Type: 
  Country: None (occurrence: None)
  Receive Date: 20080604
  Receipt Date: 20080526
  Transmission Date: 20081010
  Serious: Yes (Hospitalization)
  Sender: FDA-Public Use
  Company Number: JP-JNJFOC-20070801673

PATIENT
  Sex: Female
  Weight: 44 kg

DRUGS (49)
  1. REMICADE [Suspect]
     Route: 042
  2. REMICADE [Suspect]
     Route: 042
  3. REMICADE [Suspect]
     Route: 042
  4. REMICADE [Suspect]
     Route: 042
  5. REMICADE [Suspect]
     Route: 042
  6. REMICADE [Suspect]
     Route: 042
  7. REMICADE [Suspect]
     Route: 042
  8. REMICADE [Suspect]
     Route: 042
  9. REMICADE [Suspect]
     Route: 042
  10. REMICADE [Suspect]
     Route: 042
  11. REMICADE [Suspect]
     Route: 042
  12. REMICADE [Suspect]
     Route: 042
  13. REMICADE [Suspect]
     Route: 042
  14. REMICADE [Suspect]
     Route: 042
  15. REMICADE [Suspect]
     Route: 042
  16. REMICADE [Suspect]
     Indication: RHEUMATOID ARTHRITIS
     Route: 042
  17. RHEUMATREX [Suspect]
     Route: 048
  18. RHEUMATREX [Suspect]
     Route: 048
  19. RHEUMATREX [Suspect]
     Indication: RHEUMATOID ARTHRITIS
     Route: 048
  20. ANTIHISTAMINES [Concomitant]
  21. ANTIHISTAMINES [Concomitant]
  22. ANTIHISTAMINES [Concomitant]
  23. ANTIHISTAMINES [Concomitant]
  24. ANTIHISTAMINES [Concomitant]
  25. ANTIHISTAMINES [Concomitant]
  26. ANTIHISTAMINES [Concomitant]
  27. ANTIHISTAMINES [Concomitant]
  28. ANTIHISTAMINES [Concomitant]
  29. ANTIHISTAMINES [Concomitant]
  30. ANTIHISTAMINES [Concomitant]
  31. ANTIHISTAMINES [Concomitant]
  32. ANTIHISTAMINES [Concomitant]
  33. ANTIHISTAMINES [Concomitant]
  34. ANTIHISTAMINES [Concomitant]
     Indication: PROPHYLAXIS
  35. PREDNISOLONE [Concomitant]
     Route: 048
  36. PREDNISOLONE [Concomitant]
     Route: 048
  37. PREDNISOLONE [Concomitant]
     Route: 048
  38. PREDNISOLONE [Concomitant]
     Route: 048
  39. PREDNISOLONE [Concomitant]
     Route: 048
  40. ADRENAL HORMONE PREPARATION [Concomitant]
     Indication: RHEUMATOID ARTHRITIS
  41. AZULFIDINE EN-TABS [Concomitant]
     Indication: RHEUMATOID ARTHRITIS
     Route: 048
  42. VOLTAREN [Concomitant]
     Indication: RHEUMATOID ARTHRITIS
     Route: 048
  43. MOHRUS TAPE [Concomitant]
     Indication: RHEUMATOID ARTHRITIS
     Dosage: 1-2 SHEETS AS NEEDED.
     Route: 003
  44. SODIUM HYALURONATE [Concomitant]
     Indication: RHEUMATOID ARTHRITIS
     Dosage: 1 TUBE IR
  45. FOLIAMIN [Concomitant]
     Indication: LIVER DISORDER
     Route: 048
  46. ONEALFA [Concomitant]
     Indication: OSTEOPOROSIS PROPHYLAXIS
     Dosage: 1 RG
     Route: 048
  47. ASPARA-CA [Concomitant]
     Indication: OSTEOPOROSIS PROPHYLAXIS
     Route: 048
  48. FAMOTIDINE [Concomitant]
     Indication: GASTROINTESTINAL DISORDER
     Route: 048
  49. SODIUM HYALURONATE [Concomitant]

REACTIONS (2)
  - APPENDICITIS [None]
  - GASTROENTERITIS [None]
